FAERS Safety Report 12854679 (Version 3)
Quarter: 2017Q2

REPORT INFORMATION
  Report Type: Report from Study
  Country: None (occurrence: US)
  Receive Date: 20161017
  Receipt Date: 20170621
  Transmission Date: 20170830
  Serious: Yes (Hospitalization)
  Sender: FDA-Public Use
  Company Number: US-ABBVIE-16K-163-1751994-00

PATIENT
  Sex: Male

DRUGS (3)
  1. HUMIRA [Suspect]
     Active Substance: ADALIMUMAB
     Route: 058
     Dates: start: 201705
  2. HUMIRA [Suspect]
     Active Substance: ADALIMUMAB
     Indication: ANKYLOSING SPONDYLITIS
     Route: 058
     Dates: start: 2014, end: 201604
  3. HUMIRA [Suspect]
     Active Substance: ADALIMUMAB
     Route: 058
     Dates: start: 20160914, end: 201703

REACTIONS (11)
  - Neck pain [Unknown]
  - Fatigue [Unknown]
  - Musculoskeletal stiffness [Recovered/Resolved]
  - Haemorrhoids [Unknown]
  - Musculoskeletal stiffness [Recovered/Resolved]
  - Arthralgia [Unknown]
  - Muscle tightness [Recovering/Resolving]
  - Back pain [Unknown]
  - Anaemia [Unknown]
  - Dizziness [Recovered/Resolved]
  - Pain of skin [Unknown]

NARRATIVE: CASE EVENT DATE: 2016
